FAERS Safety Report 25139084 (Version 1)
Quarter: 2025Q1

REPORT INFORMATION
  Report Type: Spontaneous
  Country: US (occurrence: US)
  Receive Date: 20250331
  Receipt Date: 20250331
  Transmission Date: 20250409
  Serious: No
  Sender: CSL Plasma
  Company Number: US-CSLP-53301013876-V13608142-95

PATIENT
  Age: 44 Year
  Sex: Male

DRUGS (1)
  1. ANTICOAGULANT SODIUM CITRATE [Suspect]
     Active Substance: SODIUM CITRATE
     Indication: Anticoagulant therapy
     Route: 050
     Dates: start: 20250315, end: 20250315

REACTIONS (4)
  - Muscle contracture [Recovered/Resolved]
  - Movement disorder [Recovered/Resolved]
  - Pain [Recovered/Resolved]
  - Muscle spasms [Recovered/Resolved]

NARRATIVE: CASE EVENT DATE: 20250315
